FAERS Safety Report 9408295 (Version 4)
Quarter: 2013Q3

REPORT INFORMATION
  Report Type: Report from Study
  Country: GB (occurrence: GB)
  Receive Date: 20130718
  Receipt Date: 20130930
  Transmission Date: 20140515
  Serious: Yes (Hospitalization)
  Sender: FDA-Public Use
  Company Number: GB-VIIV HEALTHCARE LIMITED-A1032673A

PATIENT
  Age: 37 Year
  Sex: Female

DRUGS (4)
  1. EPZICOM [Suspect]
     Indication: ANTIRETROVIRAL THERAPY
     Dosage: 1TAB PER DAY
     Route: 048
  2. VIREAD [Suspect]
     Indication: ANTIRETROVIRAL THERAPY
     Dosage: 245MG PER DAY
     Route: 048
  3. REYATAZ [Suspect]
     Indication: ANTIRETROVIRAL THERAPY
     Dosage: 300MG PER DAY
     Route: 048
  4. NORVIR [Suspect]
     Indication: ANTIRETROVIRAL THERAPY
     Dosage: 100MG PER DAY
     Route: 048

REACTIONS (5)
  - Premature delivery [Unknown]
  - Exposure during pregnancy [Unknown]
  - Live birth [Unknown]
  - Placental insufficiency [Unknown]
  - Oligohydramnios [Unknown]
